FAERS Safety Report 7409197-2 (Version None)
Quarter: 2011Q2

REPORT INFORMATION
  Report Type: 
  Country: None (occurrence: None)
  Receive Date: 20110412
  Receipt Date: 20110405
  Transmission Date: 20111010
  Serious: Yes (Hospitalization)
  Sender: FDA-Public Use
  Company Number: B0710832A

PATIENT
  Age: 74 Year
  Sex: Male

DRUGS (1)
  1. NIQUITIN [Suspect]
     Route: 062

REACTIONS (2)
  - ECZEMA [None]
  - HYPERSENSITIVITY [None]
